FAERS Safety Report 6088178-8 (Version None)
Quarter: 2009Q1

REPORT INFORMATION
  Report Type: 
  Country: None (occurrence: None)
  Receive Date: 20090219
  Receipt Date: 20090205
  Transmission Date: 20090719
  Serious: Yes (Other)
  Sender: FDA-Public Use
  Company Number: 2009S1000647

PATIENT
  Age: 46 Year
  Sex: Female

DRUGS (1)
  1. IBUPROFEN [Suspect]
     Dosage: 600 MG;ONCE; 150 MG;ONCE; 300 MG;ONCE;  600 MG;ONCE

REACTIONS (5)
  - CHEST DISCOMFORT [None]
  - LIP SWELLING [None]
  - PRURITUS [None]
  - RASH PAPULAR [None]
  - SKIN TEST POSITIVE [None]
